FAERS Safety Report 19560724 (Version 1)
Quarter: 2021Q3

REPORT INFORMATION
  Report Type: Spontaneous
  Country: US (occurrence: US)
  Receive Date: 20210714
  Receipt Date: 20210714
  Transmission Date: 20211014
  Serious: No
  Sender: FDA-Public Use
  Company Number: US-SK LIFE SCIENCE, INC-SKPVG-2020-000253

PATIENT

DRUGS (8)
  1. XCOPRI [Suspect]
     Active Substance: CENOBAMATE
     Indication: SEIZURE
     Dosage: 12.5 MILLIGRAM, QD
     Route: 048
     Dates: start: 20200820
  2. ONFI [Suspect]
     Active Substance: CLOBAZAM
     Indication: PRODUCT USED FOR UNKNOWN INDICATION
     Dosage: 10 MILLIGRAM, BID
     Route: 065
  3. LAMICTAL [Suspect]
     Active Substance: LAMOTRIGINE
     Indication: PRODUCT USED FOR UNKNOWN INDICATION
     Dosage: 225 MILLIGRAM, BID
     Route: 065
  4. XCOPRI [Suspect]
     Active Substance: CENOBAMATE
     Indication: ATONIC SEIZURES
     Dosage: 25 MILLIGRAM, QD
     Route: 048
     Dates: start: 2020
  5. EPIDIOLEX [Suspect]
     Active Substance: CANNABIDIOL
     Indication: PRODUCT USED FOR UNKNOWN INDICATION
     Dosage: 9 MILLILITER, BID
     Route: 065
     Dates: start: 20200828
  6. EPIDIOLEX [Suspect]
     Active Substance: CANNABIDIOL
     Dosage: 5 MILLILITER, DROPPED
     Route: 065
     Dates: start: 20201014
  7. XCOPRI [Suspect]
     Active Substance: CENOBAMATE
     Indication: MYOCLONIC EPILEPSY
     Dosage: 200 MILLIGRAM, QD
     Route: 048
     Dates: start: 2020, end: 20201112
  8. VALIUM [Suspect]
     Active Substance: DIAZEPAM
     Indication: PRODUCT USED FOR UNKNOWN INDICATION
     Dosage: UNK, PRN (AS NEEDED)
     Route: 065

REACTIONS (6)
  - Atonic seizures [Not Recovered/Not Resolved]
  - Fatigue [Recovered/Resolved]
  - Myoclonic epilepsy [Not Recovered/Not Resolved]
  - Somnolence [Recovered/Resolved]
  - Product dose omission issue [Unknown]
  - Fall [Recovered/Resolved]

NARRATIVE: CASE EVENT DATE: 2020
